FAERS Safety Report 9233800 (Version 2)
Quarter: 2013Q2

REPORT INFORMATION
  Report Type: Spontaneous
  Country: US (occurrence: US)
  Receive Date: 20130416
  Receipt Date: 20130416
  Transmission Date: 20140414
  Serious: No
  Sender: FDA-Public Use
  Company Number: US-BANPHARM-20120019

PATIENT
  Age: 75 Year
  Sex: Female
  Weight: 68.18 kg

DRUGS (5)
  1. ALEVE? LIQUID GELS - ANY SIZE [Suspect]
     Indication: ARTHRITIS
     Dosage: 2 IN A.M., 1 IN P.M.
     Route: 048
  2. ALEVE? TABLETS - 130CT BONUS PK. [Suspect]
     Dosage: OTHER FREQUENCY
     Route: 048
  3. ALEVE? CAPLETS - ANY TYPE [Suspect]
     Dosage: AS NEEDED
     Route: 048
  4. BLOOD PRESSURE MEDICATION [Concomitant]
  5. HEART MEDICATION [Concomitant]

REACTIONS (1)
  - Drug ineffective [Unknown]
